FAERS Safety Report 19877289 (Version 1)
Quarter: 2021Q3

REPORT INFORMATION
  Report Type: Report from Study
  Country: US (occurrence: US)
  Receive Date: 20210923
  Receipt Date: 20210923
  Transmission Date: 20211014
  Serious: Yes (Hospitalization, Other)
  Sender: FDA-Public Use
  Company Number: US-SHIRE-US202018033

PATIENT
  Sex: Female

DRUGS (1)
  1. CUVITRU [Suspect]
     Active Substance: HUMAN IMMUNOGLOBULIN G
     Indication: PRIMARY IMMUNODEFICIENCY SYNDROME
     Dosage: UNK
     Route: 065

REACTIONS (7)
  - Medical procedure [Unknown]
  - Gait disturbance [Recovering/Resolving]
  - Malaise [Unknown]
  - Hypotonia [Unknown]
  - Autonomic failure syndrome [Unknown]
  - Weight decreased [Unknown]
  - Infection [Recovered/Resolved]
